FAERS Safety Report 14474636 (Version 1)
Quarter: 2018Q1

REPORT INFORMATION
  Report Type: Spontaneous
  Country: RO (occurrence: RO)
  Receive Date: 20180201
  Receipt Date: 20180201
  Transmission Date: 20180509
  Serious: Yes (Death)
  Sender: FDA-Public Use
  Company Number: RO-MYLANLABS-2018M1005882

PATIENT
  Age: 28 Year
  Sex: Female

DRUGS (4)
  1. BECLAMIDE [Suspect]
     Active Substance: BECLAMIDE
     Indication: GENERALISED TONIC-CLONIC SEIZURE
  2. CARBAMAZEPINE. [Suspect]
     Active Substance: CARBAMAZEPINE
     Indication: GENERALISED TONIC-CLONIC SEIZURE
     Dosage: 400 MG, QD
  3. PHENYTOIN. [Suspect]
     Active Substance: PHENYTOIN
     Indication: GENERALISED TONIC-CLONIC SEIZURE
     Dosage: 3 DF, QD
  4. PHENOBARBITAL. [Suspect]
     Active Substance: PHENOBARBITAL
     Indication: GENERALISED TONIC-CLONIC SEIZURE
     Dosage: 1 DF, QD

REACTIONS (1)
  - Pulmonary oedema [Fatal]
